FAERS Safety Report 10387951 (Version 4)
Quarter: 2014Q3

REPORT INFORMATION
  Report Type: Spontaneous
  Country: US (occurrence: US)
  Receive Date: 20140815
  Receipt Date: 20140930
  Transmission Date: 20150326
  Serious: Yes (Other)
  Sender: FDA-Public Use
  Company Number: US-PFIZER INC-2014228211

PATIENT
  Age: 75 Year
  Sex: Female
  Weight: 79.37 kg

DRUGS (5)
  1. XELJANZ [Suspect]
     Active Substance: TOFACITINIB CITRATE
     Indication: RHEUMATOID ARTHRITIS
     Dosage: 5 MG, 2X/DAY
     Route: 048
     Dates: start: 20140114
  2. PREDNISONE. [Concomitant]
     Active Substance: PREDNISONE
     Dosage: 5 MG, 1X/DAY (Q AM PC)
  3. METHOTREXATE [Concomitant]
     Active Substance: METHOTREXATE
     Dosage: 20 MG, WEEKLY
     Route: 048
  4. ACETAMINOPHEN W/OXYCODONE [Concomitant]
     Active Substance: ACETAMINOPHEN\OXYCODONE HYDROCHLORIDE
     Dosage: (325/5)
  5. FOLIC ACID. [Concomitant]
     Active Substance: FOLIC ACID
     Dosage: 1 MG, DAILY

REACTIONS (9)
  - Abnormal faeces [Not Recovered/Not Resolved]
  - Blood pressure increased [Unknown]
  - Fatigue [Not Recovered/Not Resolved]
  - Faeces pale [Not Recovered/Not Resolved]
  - Granuloma [Unknown]
  - Feeling abnormal [Unknown]
  - Drug ineffective [Unknown]
  - Pulmonary mass [Not Recovered/Not Resolved]
  - Rheumatoid nodule [Unknown]

NARRATIVE: CASE EVENT DATE: 20140202
